FAERS Safety Report 12397993 (Version 1)
Quarter: 2016Q2

REPORT INFORMATION
  Report Type: Spontaneous
  Country: US (occurrence: None)
  Receive Date: 20160523
  Receipt Date: 20160523
  Transmission Date: 20160815
  Serious: No
  Sender: FDA-Public Use
  Company Number: None

PATIENT
  Age: 69 Year
  Sex: Female

DRUGS (16)
  1. ONDANSETRON [Concomitant]
     Active Substance: ONDANSETRON
  2. DEXAMETHASONE. [Concomitant]
     Active Substance: DEXAMETHASONE
  3. IFOSFAMIDE. [Suspect]
     Active Substance: IFOSFAMIDE
     Indication: LYMPHOMA
     Route: 042
     Dates: start: 20160331, end: 20160401
  4. ALLOPURINOL. [Concomitant]
     Active Substance: ALLOPURINOL
  5. METHOTREXATE [Concomitant]
     Active Substance: METHOTREXATE
  6. RITUXIMAB [Concomitant]
     Active Substance: RITUXIMAB
  7. DULOXETINE. [Concomitant]
     Active Substance: DULOXETINE
  8. ETOPOSIDE. [Concomitant]
     Active Substance: ETOPOSIDE
  9. ACETAMINOPHEN. [Concomitant]
     Active Substance: ACETAMINOPHEN
  10. DIPHENHYDRAMINE. [Concomitant]
     Active Substance: DIPHENHYDRAMINE
  11. HEPARIN [Concomitant]
     Active Substance: HEPARIN SODIUM
  12. LANSOPRAZOLE. [Concomitant]
     Active Substance: LANSOPRAZOLE
  13. LEVOTHYROXINE. [Concomitant]
     Active Substance: LEVOTHYROXINE
  14. TRAZODONE [Concomitant]
     Active Substance: TRAZODONE HYDROCHLORIDE
  15. CARBOPLATIN. [Concomitant]
     Active Substance: CARBOPLATIN
  16. FOLIC ACID. [Concomitant]
     Active Substance: FOLIC ACID

REACTIONS (6)
  - Encephalopathy [None]
  - Neurotoxicity [None]
  - Muscle twitching [None]
  - Confusional state [None]
  - Aphasia [None]
  - Mental status changes [None]

NARRATIVE: CASE EVENT DATE: 20160401
